FAERS Safety Report 9028872 (Version 1)
Quarter: 2013Q1

REPORT INFORMATION
  Report Type: Report from Study
  Country: US (occurrence: US)
  Receive Date: 20130124
  Receipt Date: 20130124
  Transmission Date: 20140127
  Serious: Yes (Other)
  Sender: FDA-Public Use
  Company Number: US-VERTEX PHARMACEUTICALS INC.-2013-001046

PATIENT
  Age: 61 Year
  Sex: Male
  Weight: 69.84 kg

DRUGS (4)
  1. VX-950 (TELAPREVIR) [Suspect]
     Indication: HEPATITIS C
     Dosage: 750 MG, TID
  2. JANUVIA [Concomitant]
     Dosage: 100 MG, UNK
  3. METFORMIN [Concomitant]
     Dosage: 1000 MG, UNK
  4. GLIPIZIDE ER [Concomitant]
     Dosage: 5 MG, UNK

REACTIONS (4)
  - Blindness unilateral [Unknown]
  - Eye haemorrhage [Unknown]
  - Pleural effusion [Unknown]
  - Rash papular [Unknown]
